FAERS Safety Report 4399173-9 (Version None)
Quarter: 2004Q3

REPORT INFORMATION
  Report Type: 
  Country: None (occurrence: None)
  Receive Date: 20040715
  Receipt Date: 20040715
  Transmission Date: 20050211
  Serious: No
  Sender: FDA-Public Use
  Company Number: None

PATIENT
  Age: 49 Year
  Sex: Male
  Weight: 52.1637 kg

DRUGS (4)
  1. IRINOTECAN [Suspect]
     Indication: CARCINOMA
     Dosage: 90 MG DAY 1 + 8 Q 21 D IV
     Route: 042
     Dates: start: 20040528
  2. IRINOTECAN [Suspect]
     Indication: CARCINOMA
     Dosage: 90 MG DAY 1 + 8 Q 21 D IV
     Route: 042
     Dates: start: 20040604
  3. DOCETAXOL [Suspect]
     Indication: CARCINOMA
     Dosage: 55 MG DAY 1 + 8 Q 21 D IV
     Route: 042
     Dates: start: 20040618
  4. DOCETAXOL [Suspect]
     Indication: CARCINOMA
     Dosage: 55 MG DAY 1 + 8 Q 21 D IV
     Route: 042
     Dates: start: 20040625

REACTIONS (1)
  - PNEUMONIA [None]
